FAERS Safety Report 13737893 (Version 1)
Quarter: 2017Q3

REPORT INFORMATION
  Report Type: Spontaneous
  Country: US (occurrence: US)
  Receive Date: 20170710
  Receipt Date: 20170710
  Transmission Date: 20171127
  Serious: Yes (Other)
  Sender: FDA-Public Use
  Company Number: US-SAOL THERAPEUTICS-2016SAO00786

PATIENT
  Sex: Male

DRUGS (2)
  1. COMPOUNDED BACLOFEN [Suspect]
     Active Substance: BACLOFEN
     Indication: MUSCLE SPASTICITY
     Dosage: 101.07 ?G, \DAY
     Route: 037
  2. COMPOUNDED BACLOFEN [Suspect]
     Active Substance: BACLOFEN
     Indication: SPINAL CORD INJURY

REACTIONS (3)
  - Hypertension [Unknown]
  - Device failure [Unknown]
  - Withdrawal syndrome [Unknown]

NARRATIVE: CASE EVENT DATE: 20160720
